FAERS Safety Report 17660968 (Version 2)
Quarter: 2020Q2

REPORT INFORMATION
  Report Type: Spontaneous
  Country: US (occurrence: US)
  Receive Date: 20200413
  Receipt Date: 20200417
  Transmission Date: 20200713
  Serious: No
  Sender: FDA-Public Use
  Company Number: US-SA-2020SA094784

PATIENT
  Age: 36 Year
  Sex: Male

DRUGS (2)
  1. ADMELOG [Suspect]
     Active Substance: INSULIN LISPRO
     Indication: TYPE 1 DIABETES MELLITUS
     Dosage: 10 IU, BID
     Route: 065
  2. ADMELOG [Suspect]
     Active Substance: INSULIN LISPRO
     Dosage: 20 IU, BID
     Route: 065

REACTIONS (5)
  - Injection site mass [Unknown]
  - Sensory disturbance [Unknown]
  - Injection site pruritus [Unknown]
  - Hypersensitivity [Unknown]
  - Injection site pain [Unknown]
